FAERS Safety Report 14813945 (Version 1)
Quarter: 2018Q2

REPORT INFORMATION
  Report Type: Spontaneous
  Country: FR (occurrence: FR)
  Receive Date: 20180426
  Receipt Date: 20180426
  Transmission Date: 20180711
  Serious: Yes (Other)
  Sender: FDA-Public Use
  Company Number: FR-MERCK KGAA-2046582

PATIENT
  Sex: Female

DRUGS (2)
  1. EUTHYRAL(NOVOTHYRAL)(TABLET) [Suspect]
     Active Substance: LEVOTHYROXINE SODIUM\LIOTHYRONINE SODIUM
  2. NOVOTHYROX [Suspect]
     Active Substance: LEVOTHYROXINE SODIUM
     Indication: AUTOIMMUNE THYROIDITIS
     Dates: start: 201705

REACTIONS (29)
  - Angioedema [None]
  - Dyspnoea exertional [Recovering/Resolving]
  - Panic attack [None]
  - Hypokinesia [None]
  - Heart rate increased [None]
  - Depression [Recovering/Resolving]
  - Weight increased [None]
  - Fear [None]
  - Fatigue [None]
  - Aggression [None]
  - Gastrointestinal disorder [Recovering/Resolving]
  - Dyspepsia [None]
  - Depressed mood [None]
  - Loss of personal independence in daily activities [None]
  - Thyroxine free decreased [None]
  - Pharyngeal disorder [Not Recovered/Not Resolved]
  - Pain [Recovering/Resolving]
  - Myalgia [None]
  - Impaired driving ability [None]
  - Insomnia [Recovering/Resolving]
  - Asthenia [Not Recovered/Not Resolved]
  - Suicidal ideation [None]
  - Headache [Recovering/Resolving]
  - Arthralgia [None]
  - Psychiatric symptom [None]
  - Tinnitus [None]
  - Breast pain [None]
  - Hyperhidrosis [None]
  - Social avoidant behaviour [None]
